FAERS Safety Report 7896754-2 (Version None)
Quarter: 2011Q4

REPORT INFORMATION
  Report Type: 
  Country: None (occurrence: None)
  Receive Date: 20111107
  Receipt Date: 20111028
  Transmission Date: 20120403
  Serious: No
  Sender: FDA-Public Use
  Company Number: US-BIOGENIDEC-2011BI041620

PATIENT
  Age: 57 Year
  Sex: Female

DRUGS (1)
  1. TYSABRI [Suspect]
     Indication: MULTIPLE SCLEROSIS
     Route: 042
     Dates: start: 20110830

REACTIONS (6)
  - COGNITIVE DISORDER [None]
  - GAIT DISTURBANCE [None]
  - BALANCE DISORDER [None]
  - MULTIPLE SCLEROSIS [None]
  - FATIGUE [None]
  - HYPERSENSITIVITY [None]
